FAERS Safety Report 9308066 (Version 1)
Quarter: 2013Q2

REPORT INFORMATION
  Report Type: Spontaneous
  Country: GB (occurrence: GB)
  Receive Date: 20130524
  Receipt Date: 20130524
  Transmission Date: 20140414
  Serious: Yes (Other)
  Sender: FDA-Public Use
  Company Number: GB-JNJFOC-20130509345

PATIENT
  Age: 81 Year
  Sex: Male

DRUGS (7)
  1. XARELTO [Suspect]
     Indication: CEREBROVASCULAR ACCIDENT PROPHYLAXIS
     Route: 048
     Dates: start: 20130407, end: 20130423
  2. XARELTO [Suspect]
     Indication: ATRIAL FIBRILLATION
     Route: 048
     Dates: start: 20130407, end: 20130423
  3. SODIUM VALPROATE [Concomitant]
     Indication: EPILEPSY
     Route: 065
  4. BUMETANIDE [Concomitant]
     Indication: CARDIAC FAILURE
     Route: 065
  5. DIGOXIN [Concomitant]
     Route: 065
  6. ALENDRONIC ACID [Concomitant]
     Route: 065
  7. BISOPROLOL [Concomitant]
     Indication: ATRIAL FIBRILLATION
     Route: 065

REACTIONS (5)
  - Haemorrhage [Recovering/Resolving]
  - Haematoma [Recovering/Resolving]
  - Joint swelling [Recovering/Resolving]
  - Arthralgia [Recovering/Resolving]
  - Pain in extremity [Recovering/Resolving]
